FAERS Safety Report 6017067-X (Version None)
Quarter: 2008Q4

REPORT INFORMATION
  Report Type: 
  Country: None (occurrence: None)
  Receive Date: 20081223
  Receipt Date: 20081218
  Transmission Date: 20090506
  Serious: Yes (Other)
  Sender: FDA-Public Use
  Company Number: US-WYE-H07345508

PATIENT

DRUGS (4)
  1. RAPAMUNE [Suspect]
     Indication: GRAFT VERSUS HOST DISEASE
     Dosage: 12MG LOADING DOSE ADMINISTERED ON DAY 3
  2. RAPAMUNE [Suspect]
  3. METHOTREXATE [Concomitant]
  4. TACROLIMUS [Concomitant]

REACTIONS (1)
  - VENOOCCLUSIVE LIVER DISEASE [None]
